FAERS Safety Report 9116777 (Version 2)
Quarter: 2013Q2

REPORT INFORMATION
  Report Type: Spontaneous
  Country: IT (occurrence: IT)
  Receive Date: 20130225
  Receipt Date: 20130410
  Transmission Date: 20140414
  Serious: Yes (Hospitalization)
  Sender: FDA-Public Use
  Company Number: IT-ABBOTT-13P-083-1053944-00

PATIENT
  Age: 50 Year
  Sex: Female

DRUGS (3)
  1. DEPAKINE CHRONO [Suspect]
     Indication: DEPRESSION
     Dosage: EXTENDED RELEASE
     Route: 048
     Dates: start: 20120101
  2. CARBOLITHIUM [Suspect]
     Indication: BIPOLAR DISORDER
     Route: 048
     Dates: start: 20120101, end: 20120530
  3. TAVOR [Suspect]
     Indication: DEPRESSION
     Route: 048
     Dates: start: 20120101, end: 20120530

REACTIONS (4)
  - Fall [Unknown]
  - Speech disorder [Recovered/Resolved]
  - Toxicity to various agents [Recovered/Resolved]
  - Confusional state [Recovered/Resolved]
